FAERS Safety Report 7534427 (Version 4)
Quarter: 2020Q3

REPORT INFORMATION
  Report Type: Report from Study
  Country: US (occurrence: US)
  Receive Date: 20100810
  Receipt Date: 20111123
  Transmission Date: 20201105
  Serious: Yes (Hospitalization)
  Sender: FDA-Public Use
  Company Number: US-JNJFOC-20100800582

PATIENT
  Age: 64 Year
  Sex: Male
  Weight: 130.6 kg

DRUGS (14)
  1. FUROSEMIDE. [Concomitant]
     Active Substance: FUROSEMIDE
     Dates: start: 20080515
  2. URSODIOL. [Concomitant]
     Active Substance: URSODIOL
     Dates: start: 20090630
  3. ENALAPRIL [Concomitant]
     Active Substance: ENALAPRIL
     Dates: start: 20080606
  4. METOPROLOL. [Concomitant]
     Active Substance: METOPROLOL
     Dates: start: 20050301
  5. LIPITOR [Concomitant]
     Active Substance: ATORVASTATIN CALCIUM
     Dates: start: 20050301
  6. CLARITIN [Concomitant]
     Active Substance: LORATADINE
     Dates: start: 20100407
  7. FLUOCINONIDE. [Concomitant]
     Active Substance: FLUOCINONIDE
  8. GOLIMUMAB [Suspect]
     Active Substance: GOLIMUMAB
     Route: 058
     Dates: start: 20081119
  9. FERROUS GLUCONATE [Concomitant]
     Active Substance: FERROUS GLUCONATE
     Dates: start: 20090630
  10. NASONEX [Concomitant]
     Active Substance: MOMETASONE FUROATE
     Dates: start: 20100325
  11. ASPIRIN. [Concomitant]
     Active Substance: ASPIRIN
     Dates: start: 20090616
  12. IMODIUM [Concomitant]
     Active Substance: LOPERAMIDE HYDROCHLORIDE
     Dates: start: 20100601
  13. GOLIMUMAB [Suspect]
     Active Substance: GOLIMUMAB
     Indication: COLITIS ULCERATIVE
     Route: 058
     Dates: start: 20081002
  14. BENADRYL [Concomitant]
     Active Substance: DIPHENHYDRAMINE HYDROCHLORIDE
     Dates: start: 20100407

REACTIONS (2)
  - Urinary tract infection [Recovered/Resolved]
  - Nephrolithiasis [Recovered/Resolved]

NARRATIVE: CASE EVENT DATE: 20100725
